FAERS Safety Report 10666004 (Version 1)
Quarter: 2014Q4

REPORT INFORMATION
  Report Type: Spontaneous
  Country: US (occurrence: US)
  Receive Date: 20141219
  Receipt Date: 20141219
  Transmission Date: 20150529
  Serious: Yes (Hospitalization)
  Sender: FDA-Public Use
  Company Number: US-LUNDBECK-DKLU1106641

PATIENT
  Age: 13 Year
  Sex: Female

DRUGS (2)
  1. ONFI [Suspect]
     Active Substance: CLOBAZAM
     Indication: SEIZURE
  2. ONFI [Suspect]
     Active Substance: CLOBAZAM
     Route: 065

REACTIONS (1)
  - Pancreatitis [Unknown]
